FAERS Safety Report 9999466 (Version 1)
Quarter: 2014Q1

REPORT INFORMATION
  Report Type: Spontaneous
  Country: US (occurrence: None)
  Receive Date: 20140311
  Receipt Date: 20140311
  Transmission Date: 20141002
  Serious: No
  Sender: FDA-Public Use
  Company Number: None

PATIENT
  Age: 62 Year
  Sex: Female

DRUGS (10)
  1. REVLIMID [Suspect]
     Indication: PLASMA CELL MYELOMA
     Route: 048
     Dates: start: 20131227, end: 20140114
  2. ACYCLOVIR [Concomitant]
  3. SULFAMETHOXALE/TMP [Concomitant]
  4. AMLODIPINE [Concomitant]
  5. SIMVASTATIN [Concomitant]
  6. OMEPRAZOLE [Concomitant]
  7. HYDROCODONE/APAP [Concomitant]
  8. DIPHENOXYLATE/ATROPINE [Concomitant]
  9. ALBUTEROL HFA [Concomitant]
  10. FLUTICASONE NS [Concomitant]

REACTIONS (2)
  - Neuropathy peripheral [None]
  - Hypersensitivity [None]
